FAERS Safety Report 14554017 (Version 1)
Quarter: 2018Q1

REPORT INFORMATION
  Report Type: Spontaneous
  Country: US (occurrence: US)
  Receive Date: 20180217
  Receipt Date: 20180217
  Transmission Date: 20180509
  Serious: No
  Sender: FDA-Public Use
  Company Number: None

PATIENT
  Age: 34 Year
  Sex: Female

DRUGS (1)
  1. ENOXAPARIN SYR 40MG/0.4ML [Suspect]
     Active Substance: ENOXAPARIN

REACTIONS (4)
  - Memory impairment [None]
  - Drug dose omission [None]
  - Exposure during pregnancy [None]
  - Gastroenteritis viral [None]

NARRATIVE: CASE EVENT DATE: 20180217
